FAERS Safety Report 6208048-1 (Version None)
Quarter: 2009Q2

REPORT INFORMATION
  Report Type: 
  Country: None (occurrence: None)
  Receive Date: 20090529
  Receipt Date: 20090518
  Transmission Date: 20091009
  Serious: Yes (Hospitalization, Other)
  Sender: FDA-Public Use
  Company Number: US-RANBAXY-2009RR-24311

PATIENT
  Age: 68 Year
  Sex: Male

DRUGS (2)
  1. CARBILEV [Suspect]
     Indication: PARKINSON'S DISEASE
     Dosage: 600 MG, QD
  2. PRAMIPEXOLE DIHYDROCHLORIDE [Suspect]
     Indication: PARKINSON'S DISEASE
     Dosage: 4.5 MG, UNK

REACTIONS (2)
  - GAMBLING [None]
  - HYPERSEXUALITY [None]
